FAERS Safety Report 4705189-2 (Version None)
Quarter: 2005Q3

REPORT INFORMATION
  Report Type: 
  Country: None (occurrence: None)
  Receive Date: 20050701
  Receipt Date: 20050624
  Transmission Date: 20060218
  Serious: Yes (Hospitalization)
  Sender: FDA-Public Use
  Company Number: PHNU2005DE02372

PATIENT
  Age: 58 Year
  Sex: Male

DRUGS (6)
  1. EXELON [Suspect]
     Indication: DEMENTIA ALZHEIMER'S TYPE
     Dosage: 9 MG/DAY
     Route: 048
     Dates: end: 20050502
  2. MELNEURIN [Suspect]
     Dosage: 75 MG/DAY
     Route: 048
     Dates: start: 20050316, end: 20050324
  3. MELNEURIN [Suspect]
     Dosage: 25 MG/DAY
     Route: 048
     Dates: start: 20040325, end: 20040404
  4. MELNEURIN [Suspect]
     Dosage: 75 MG/DAY
     Route: 048
     Dates: start: 20050405, end: 20050407
  5. MELNEURIN [Suspect]
     Dosage: 125 MG/DAY
     Route: 048
     Dates: start: 20050408, end: 20050430
  6. RISPERDAL [Suspect]
     Indication: RESTLESSNESS
     Dosage: 0.5 MG/DAY
     Route: 048
     Dates: start: 20050413, end: 20050416

REACTIONS (2)
  - PLEUROTHOTONUS [None]
  - RESPIRATORY TRACT INFECTION [None]
